FAERS Safety Report 6298958-1 (Version None)
Quarter: 2009Q3

REPORT INFORMATION
  Report Type: 
  Country: None (occurrence: None)
  Receive Date: 20090804
  Receipt Date: 20090723
  Transmission Date: 20100115
  Serious: Yes (Hospitalization, Other)
  Sender: FDA-Public Use
  Company Number: MOZO-1000219

PATIENT
  Age: 39 Year
  Sex: Male
  Weight: 85 kg

DRUGS (3)
  1. MOZOBIL [Suspect]
     Indication: HAEMATOPOIETIC STEM CELL MOBILISATION
     Dosage: 20.4 MG, SUBCUTANEOUS
     Route: 058
     Dates: start: 20090420, end: 20090420
  2. FILGRASTIM (FILGRASTIM) [Suspect]
     Indication: HAEMATOPOIETIC STEM CELL MOBILISATION
     Dosage: 0.9 MG, QD,
     Dates: start: 20090417, end: 20090421
  3. MELPHALAN (MELPHALAN) [Concomitant]

REACTIONS (4)
  - NEUTROPENIA [None]
  - PROCEDURAL COMPLICATION [None]
  - THROMBOCYTOPENIA [None]
  - WHITE BLOOD CELL COUNT DECREASED [None]
